FAERS Safety Report 23973154 (Version 1)
Quarter: 2024Q2

REPORT INFORMATION
  Report Type: Spontaneous
  Country: US (occurrence: US)
  Receive Date: 20240613
  Receipt Date: 20240613
  Transmission Date: 20240715
  Serious: No
  Sender: FDA-Public Use
  Company Number: US-HALEON-2181622

PATIENT

DRUGS (1)
  1. TUMS SMOOTHIES [Suspect]
     Active Substance: CALCIUM CARBONATE
     Indication: Muscle spasms
     Dosage: 1 - TABLETS (TAB)

REACTIONS (2)
  - Drug effective for unapproved indication [Unknown]
  - Product use in unapproved indication [Unknown]
